FAERS Safety Report 7817370-4 (Version None)
Quarter: 2011Q4

REPORT INFORMATION
  Report Type: 
  Country: None (occurrence: None)
  Receive Date: 20111017
  Receipt Date: 20110912
  Transmission Date: 20120403
  Serious: No
  Sender: FDA-Public Use
  Company Number: US-B.I. PHARMACEUTICALS,INC./RIDGEFIELD-2011-BP-22004BP

PATIENT
  Sex: Female

DRUGS (3)
  1. ASMANEX TWISTHALER [Concomitant]
     Indication: ASTHMA
  2. SPIRIVA [Suspect]
     Indication: ASTHMA
     Dosage: 18 MCG
     Route: 055
     Dates: start: 20010101
  3. MEDICATION NOT FURTHER SPECIFIED [Concomitant]

REACTIONS (1)
  - VOCAL CORD DISORDER [None]
